FAERS Safety Report 6965695-7 (Version None)
Quarter: 2010Q3

REPORT INFORMATION
  Report Type: 
  Country: None (occurrence: None)
  Receive Date: 20100903
  Receipt Date: 20100819
  Transmission Date: 20110219
  Serious: Yes (Other)
  Sender: FDA-Public Use
  Company Number: BR-ROCHE-723006

PATIENT
  Age: 22 Year
  Sex: Female

DRUGS (5)
  1. ROACUTAN [Suspect]
     Indication: ACNE
     Route: 065
  2. SELENE [Suspect]
     Indication: PRODUCT USED FOR UNKNOWN INDICATION
     Route: 065
     Dates: end: 20100501
  3. YASMIN [Suspect]
     Indication: PRODUCT USED FOR UNKNOWN INDICATION
     Route: 065
  4. AZELAN [Suspect]
     Indication: ACNE
     Route: 065
  5. SUAVICID [Suspect]
     Indication: ACNE
     Route: 065

REACTIONS (2)
  - ACNE [None]
  - HAEMORRHAGE [None]
